FAERS Safety Report 7388780-7 (Version None)
Quarter: 2011Q2

REPORT INFORMATION
  Report Type: 
  Country: None (occurrence: None)
  Receive Date: 20110401
  Receipt Date: 20110401
  Transmission Date: 20111010
  Serious: Yes (Life-Threatening, Hospitalization)
  Sender: FDA-Public Use
  Company Number: None

PATIENT
  Age: 48 Year
  Sex: Female
  Weight: 43.0917 kg

DRUGS (1)
  1. TRIAD ALCOHOL PAD N/A N/A [Suspect]
     Indication: MULTIPLE SCLEROSIS
     Dates: start: 19930101, end: 20100831

REACTIONS (3)
  - APPLICATION SITE REACTION [None]
  - ABSCESS [None]
  - INJECTION SITE INFECTION [None]
